FAERS Safety Report 16658417 (Version 1)
Quarter: 2019Q3

REPORT INFORMATION
  Report Type: Spontaneous
  Country: US (occurrence: US)
  Receive Date: 20190801
  Receipt Date: 20190801
  Transmission Date: 20191004
  Serious: No
  Sender: FDA-Public Use
  Company Number: US-009507513-1907USA016712

PATIENT
  Sex: Male

DRUGS (1)
  1. DULERA [Suspect]
     Active Substance: FORMOTEROL FUMARATE DIHYDRATE\MOMETASONE FUROATE
     Dosage: 2 PUFFS, ONCE A DAY

REACTIONS (8)
  - Inappropriate schedule of product administration [Unknown]
  - Device malfunction [Unknown]
  - Product quality issue [Unknown]
  - Product dose omission [Unknown]
  - Feeling hot [Unknown]
  - Product use in unapproved indication [Unknown]
  - Product use issue [Unknown]
  - Hypersensitivity [Unknown]

NARRATIVE: CASE EVENT DATE: 2019
